FAERS Safety Report 21834675 (Version 1)
Quarter: 2023Q1

REPORT INFORMATION
  Report Type: Spontaneous
  Country: US (occurrence: US)
  Receive Date: 20230108
  Receipt Date: 20230108
  Transmission Date: 20230418
  Serious: Yes (Hospitalization, Other)
  Sender: FDA-Public Use
  Company Number: US-BAXTER-2023BAX009818

PATIENT
  Age: 68 Year
  Sex: Female

DRUGS (2)
  1. DOXORUBICIN [Suspect]
     Active Substance: DOXORUBICIN
     Indication: Invasive ductal breast carcinoma
     Dosage: FOUR CYCLES; CUMULATIVE DOSE OF DOXORUBICIN 472 MG/M2
     Route: 065
     Dates: start: 202110
  2. CYCLOPHOSPHAMIDE [Suspect]
     Active Substance: CYCLOPHOSPHAMIDE
     Indication: Invasive ductal breast carcinoma
     Dosage: FOUR CYCLES; CUMULATIVE CYCLOPHOSPHAMIDE 4720 MG/M2
     Route: 065
     Dates: start: 202110

REACTIONS (4)
  - Device malfunction [Recovered/Resolved]
  - Device pacing issue [Recovered/Resolved]
  - Left ventricular hypertrophy [Unknown]
  - Syncope [Recovered/Resolved]

NARRATIVE: CASE EVENT DATE: 20211001
